FAERS Safety Report 4503454-5 (Version None)
Quarter: 2004Q4

REPORT INFORMATION
  Report Type: 
  Country: None (occurrence: None)
  Receive Date: 20041112
  Receipt Date: 20041101
  Transmission Date: 20050328
  Serious: Yes (Hospitalization)
  Sender: FDA-Public Use
  Company Number: SUSI-2004-00719

PATIENT
  Age: 43 Year
  Sex: Female

DRUGS (2)
  1. PENTASA [Suspect]
     Indication: CROHN'S DISEASE
     Dosage: 2250, MG, ORAL
     Route: 048
     Dates: start: 19960726, end: 20040322
  2. LOPERAMIDE HCL [Concomitant]

REACTIONS (5)
  - BLOOD ELECTROLYTES ABNORMAL [None]
  - DEHYDRATION [None]
  - DIARRHOEA [None]
  - RENAL FAILURE CHRONIC [None]
  - TUBULOINTERSTITIAL NEPHRITIS [None]
